FAERS Safety Report 6932872-0 (Version None)
Quarter: 2010Q3

REPORT INFORMATION
  Report Type: 
  Country: None (occurrence: None)
  Receive Date: 20100813
  Receipt Date: 20100429
  Transmission Date: 20110219
  Serious: No
  Sender: FDA-Public Use
  Company Number: 1000013486

PATIENT
  Age: 39 Year
  Sex: Female

DRUGS (6)
  1. SAVELLA [Suspect]
     Indication: FIBROMYALGIA
     Dosage: SEE IMAGE, ORAL
     Route: 048
     Dates: start: 20100415, end: 20100416
  2. SAVELLA [Suspect]
     Indication: FIBROMYALGIA
     Dosage: SEE IMAGE, ORAL
     Route: 048
     Dates: start: 20100417, end: 20100418
  3. SAVELLA [Suspect]
     Indication: FIBROMYALGIA
     Dosage: SEE IMAGE, ORAL
     Route: 048
     Dates: start: 20100419, end: 20100422
  4. SAVELLA [Suspect]
     Indication: FIBROMYALGIA
     Dosage: SEE IMAGE, ORAL
     Route: 048
     Dates: start: 20100423
  5. IMITREX [Concomitant]
  6. NORCO [Concomitant]

REACTIONS (1)
  - HYPERHIDROSIS [None]
